FAERS Safety Report 8215545-6 (Version None)
Quarter: 2012Q1

REPORT INFORMATION
  Report Type: 
  Country: None (occurrence: None)
  Receive Date: 20120316
  Receipt Date: 20120301
  Transmission Date: 20120608
  Serious: Yes (Other)
  Sender: FDA-Public Use
  Company Number: JP-ROCHE-1033050

PATIENT
  Sex: Male
  Weight: 48 kg

DRUGS (17)
  1. GOODMIN [Concomitant]
     Indication: INSOMNIA
     Route: 048
     Dates: start: 20061025
  2. ROCEPHIN [Concomitant]
     Indication: PNEUMONIA
     Dosage: DRUG REPORTED AS ROCEPHIN 1G BAG
     Route: 041
     Dates: start: 20120114, end: 20120117
  3. TAMIFLU [Suspect]
     Route: 048
     Dates: start: 20120116, end: 20120116
  4. FAMOTIDINE [Concomitant]
     Indication: GASTRIC ULCER
     Route: 048
     Dates: start: 20060705
  5. MUCOSIL-10 [Concomitant]
     Indication: PRODUCTIVE COUGH
     Route: 048
     Dates: start: 20120112, end: 20120116
  6. ROHYPNOL [Concomitant]
     Indication: INSOMNIA
     Route: 048
     Dates: start: 20050920, end: 20120116
  7. PURSENNID [Concomitant]
     Indication: CONSTIPATION
     Route: 048
     Dates: start: 20050920
  8. ASPIRIN [Concomitant]
     Indication: THROMBOSIS PROPHYLAXIS
     Route: 048
     Dates: start: 20060404
  9. MYONAL [Concomitant]
     Indication: BACK PAIN
     Route: 048
     Dates: start: 20060705, end: 20120112
  10. TAMIFLU [Suspect]
     Indication: INFLUENZA
     Route: 048
     Dates: start: 20120112, end: 20120112
  11. TAMIFLU [Suspect]
     Route: 048
     Dates: start: 20120113, end: 20120115
  12. NORVASC [Concomitant]
     Indication: HYPERTENSION
     Route: 048
     Dates: start: 20060404
  13. ALLOPURINOL [Concomitant]
     Indication: HYPERURICAEMIA
     Route: 048
     Dates: start: 20050920
  14. ACETAMINOPHEN [Concomitant]
     Route: 048
     Dates: start: 20120112
  15. PROMETHAZINE HCL [Concomitant]
     Indication: PARKINSONISM
     Route: 048
     Dates: start: 20111031
  16. GASMOTIN [Concomitant]
     Indication: GASTRITIS
     Route: 048
     Dates: start: 20071004
  17. ACETAMINOPHEN [Concomitant]
     Indication: PYREXIA
     Route: 054
     Dates: start: 20120111

REACTIONS (1)
  - RHABDOMYOLYSIS [None]
